FAERS Safety Report 10636033 (Version 2)
Quarter: 2015Q1

REPORT INFORMATION
  Report Type: Spontaneous
  Country: IT (occurrence: IT)
  Receive Date: 20141205
  Receipt Date: 20150218
  Transmission Date: 20150720
  Serious: Yes (Hospitalization)
  Sender: FDA-Public Use
  Company Number: IT-BAYER-2014-179635

PATIENT
  Age: 88 Year
  Sex: Female

DRUGS (5)
  1. CARDIOASPIRIN [Suspect]
     Active Substance: ASPIRIN
     Indication: PROPHYLAXIS
     Dosage: 100 MG, QD
     Route: 048
     Dates: start: 20121201, end: 20140930
  2. FOLINA [Concomitant]
     Active Substance: FOLIC ACID
     Dosage: 5 MG, QD
     Route: 048
  3. CIPRALEX [Concomitant]
     Active Substance: ESCITALOPRAM OXALATE
     Dosage: 10 MG, QD
  4. ZYLORIC [Concomitant]
     Active Substance: ALLOPURINOL
     Route: 048
  5. EUTIROX [Concomitant]
     Active Substance: LEVOTHYROXINE SODIUM
     Dosage: 50 ?G, QD
     Route: 048

REACTIONS (2)
  - Cerebral haemorrhage [Recovering/Resolving]
  - Psychomotor skills impaired [Recovering/Resolving]

NARRATIVE: CASE EVENT DATE: 20140923
